FAERS Safety Report 19929515 (Version 4)
Quarter: 2022Q2

REPORT INFORMATION
  Report Type: Spontaneous
  Country: US (occurrence: US)
  Receive Date: 20211007
  Receipt Date: 20220510
  Transmission Date: 20220721
  Serious: Yes (Other)
  Sender: FDA-Public Use
  Company Number: US-PFIZER INC-202101291880

PATIENT
  Age: 65 Year
  Sex: Female

DRUGS (3)
  1. IBRANCE [Suspect]
     Active Substance: PALBOCICLIB
     Dosage: 75 MG
     Dates: start: 20200319
  2. IBRANCE [Suspect]
     Active Substance: PALBOCICLIB
     Dosage: 75 MG
     Dates: start: 20210301, end: 2021
  3. IBRANCE [Suspect]
     Active Substance: PALBOCICLIB
     Dosage: 75 MG, 2 WEEKS OFF IN 28 DAYS CYCLE

REACTIONS (12)
  - Intracranial aneurysm [Unknown]
  - Nausea [Unknown]
  - Fatigue [Unknown]
  - Bone pain [Unknown]
  - Myalgia [Unknown]
  - Arthralgia [Unknown]
  - Infection [Unknown]
  - Rash [Unknown]
  - Vomiting [Unknown]
  - Skin exfoliation [Unknown]
  - Off label use [Unknown]
  - Product use issue [Unknown]
